FAERS Safety Report 12802490 (Version 1)
Quarter: 2016Q4

REPORT INFORMATION
  Report Type: Spontaneous
  Country: CN (occurrence: CN)
  Receive Date: 20161003
  Receipt Date: 20161003
  Transmission Date: 20170207
  Serious: Yes (Death, Life-Threatening)
  Sender: FDA-Public Use
  Company Number: CN-HQ SPECIALTY-CN-2016INT000902

PATIENT
  Age: 58 Year
  Sex: Female

DRUGS (4)
  1. MITOMYCIN. [Suspect]
     Active Substance: MITOMYCIN
     Indication: ADENOCARCINOMA
  2. CISPLATIN. [Suspect]
     Active Substance: CISPLATIN
     Indication: MALIGNANT PERITONEAL NEOPLASM
     Dosage: 120 MG, SINGLE
     Route: 033
  3. CISPLATIN. [Suspect]
     Active Substance: CISPLATIN
     Indication: ADENOCARCINOMA
  4. MITOMYCIN. [Suspect]
     Active Substance: MITOMYCIN
     Indication: MALIGNANT PERITONEAL NEOPLASM
     Dosage: 30 MG, SINGLE
     Route: 033

REACTIONS (4)
  - Deep vein thrombosis [Fatal]
  - Anastomotic haemorrhage [Recovering/Resolving]
  - Haematochezia [Recovering/Resolving]
  - Renal failure [Fatal]
